FAERS Safety Report 14657258 (Version 1)
Quarter: 2018Q1

REPORT INFORMATION
  Report Type: Spontaneous
  Country: US (occurrence: US)
  Receive Date: 20180319
  Receipt Date: 20180319
  Transmission Date: 20180509
  Serious: Yes (Other)
  Sender: FDA-Public Use
  Company Number: US-PFIZER INC-2018110265

PATIENT

DRUGS (5)
  1. XELJANZ XR [Suspect]
     Active Substance: TOFACITINIB CITRATE
     Dosage: UNK
     Dates: start: 20180112
  2. IBUPROFEN. [Suspect]
     Active Substance: IBUPROFEN
     Dosage: UNK
  3. PREDNISONE. [Suspect]
     Active Substance: PREDNISONE
     Dosage: 7.5 MG, DAILY (1 1/2 TABLET A DAY)
  4. METHOTREXATE. [Suspect]
     Active Substance: METHOTREXATE
     Dosage: 20 MG, WEEKLY (2.5MG 8 TABLETS ONCE A WEEK)
  5. MELOXICAM. [Suspect]
     Active Substance: MELOXICAM
     Dosage: 7.5 MG, 1X/DAY

REACTIONS (2)
  - Rheumatoid arthritis [Unknown]
  - Fibromyalgia [Unknown]
